FAERS Safety Report 20869744 (Version 1)
Quarter: 2022Q2

REPORT INFORMATION
  Report Type: Spontaneous
  Country: US (occurrence: US)
  Receive Date: 20220525
  Receipt Date: 20220525
  Transmission Date: 20220721
  Serious: No
  Sender: FDA-Public Use
  Company Number: US-AMGEN-USASP2022082011

PATIENT
  Age: 80 Year
  Sex: Male
  Weight: 69.3 kg

DRUGS (1)
  1. RIABNI [Suspect]
     Active Substance: RITUXIMAB-ARRX
     Indication: Product used for unknown indication
     Dosage: 700 MILLIGRAM, QWK
     Route: 042

REACTIONS (1)
  - Malaise [Unknown]
